FAERS Safety Report 6542804-5 (Version None)
Quarter: 2010Q1

REPORT INFORMATION
  Report Type: 
  Country: None (occurrence: None)
  Receive Date: 20100114
  Receipt Date: 20091223
  Transmission Date: 20100710
  Serious: Yes (Hospitalization)
  Sender: FDA-Public Use
  Company Number: 220090J09GBR

PATIENT
  Age: 7 Year
  Sex: Female

DRUGS (1)
  1. SAIZEN [Suspect]
     Dosage: 1.2 MG
     Dates: start: 20091218

REACTIONS (3)
  - DEHYDRATION [None]
  - INFECTION [None]
  - VOMITING [None]
